FAERS Safety Report 5643733-1 (Version None)
Quarter: 2008Q1

REPORT INFORMATION
  Report Type: 
  Country: None (occurrence: None)
  Receive Date: 20080228
  Receipt Date: 20080219
  Transmission Date: 20080703
  Serious: Yes (Hospitalization, Other)
  Sender: FDA-Public Use
  Company Number: US-PFIZER INC-2008015746

PATIENT
  Sex: Female
  Weight: 59 kg

DRUGS (7)
  1. SUTENT [Suspect]
     Indication: RENAL CELL CARCINOMA
     Dates: start: 20080102, end: 20080129
  2. NORVASC [Concomitant]
  3. TENORMIN [Concomitant]
  4. LEXAPRO [Concomitant]
  5. DILANTIN [Concomitant]
  6. DECADRON [Concomitant]
  7. VITAMINS [Concomitant]

REACTIONS (6)
  - BLOOD GLUCOSE INCREASED [None]
  - DISEASE PROGRESSION [None]
  - MONOPLEGIA [None]
  - ORAL INFECTION [None]
  - RASH GENERALISED [None]
  - RENAL CELL CARCINOMA [None]
